FAERS Safety Report 8948549 (Version 2)
Quarter: 2012Q4

REPORT INFORMATION
  Report Type: 
  Country: US (occurrence: US)
  Receive Date: 20121121
  Receipt Date: 20121212
  Transmission Date: 20130627
  Serious: Yes (Death, Hospitalization, Other)
  Sender: FDA-Public Use
  Company Number: US-ASTELLAS-1117289

PATIENT
  Sex: Male
  Weight: 78.09 kg

DRUGS (5)
  1. TARCEVA [Suspect]
     Indication: LUNG NEOPLASM MALIGNANT
     Route: 065
  2. ALIMTA [Concomitant]
  3. CARBOPLATIN [Concomitant]
  4. TAXOTERE [Concomitant]
     Dosage: cycle 1
     Route: 065
  5. TAXOTERE [Concomitant]
     Dosage: cycle 2
     Route: 065
     Dates: start: 20091120

REACTIONS (5)
  - Death [Fatal]
  - Disease progression [Unknown]
  - Pleural effusion [Unknown]
  - Dyspnoea [Unknown]
  - Hypoxia [Unknown]
